FAERS Safety Report 14838674 (Version 2)
Quarter: 2018Q2

REPORT INFORMATION
  Report Type: Spontaneous
  Country: FR (occurrence: FR)
  Receive Date: 20180502
  Receipt Date: 20180621
  Transmission Date: 20180711
  Serious: Yes (Life-Threatening, Hospitalization, Other)
  Sender: FDA-Public Use
  Company Number: FR-MYLANLABS-2018M1027627

PATIENT
  Age: 56 Year
  Sex: Male
  Weight: 47 kg

DRUGS (11)
  1. EMEND [Suspect]
     Active Substance: APREPITANT
     Indication: PREMEDICATION
     Dosage: 125 MG, 1X/DAY
     Route: 048
     Dates: start: 20161115, end: 20161117
  2. COLCHIMAX [Concomitant]
     Active Substance: COLCHICINE\DICYCLOMINE HYDROCHLORIDE
     Indication: PRODUCT USED FOR UNKNOWN INDICATION
     Dosage: UNK UNK, DAILY
     Dates: start: 20160614, end: 20160621
  3. PERINDOPRIL [Concomitant]
     Active Substance: PERINDOPRIL
     Indication: PRODUCT USED FOR UNKNOWN INDICATION
     Dosage: 2 MG, 1X/DAY
     Route: 048
  4. PLAVIX [Concomitant]
     Active Substance: CLOPIDOGREL BISULFATE
     Indication: PRODUCT USED FOR UNKNOWN INDICATION
     Dosage: 75 MG, 1X/DAY
     Route: 048
  5. ATORVASTATIN [Concomitant]
     Active Substance: ATORVASTATIN
     Indication: PRODUCT USED FOR UNKNOWN INDICATION
     Dosage: 20 MG, 1X/DAY
     Route: 048
  6. FLUOROURACILE ACCORD [Suspect]
     Active Substance: FLUOROURACIL
     Indication: NASAL CAVITY CANCER
     Dosage: 2880 MG, 1X/DAY
     Route: 042
     Dates: start: 20161115, end: 20161116
  7. ATENOLOL. [Concomitant]
     Active Substance: ATENOLOL
     Indication: PRODUCT USED FOR UNKNOWN INDICATION
     Dosage: 50 MG, 1X/DAY
     Route: 048
  8. CARBOPLATIN. [Suspect]
     Active Substance: CARBOPLATIN
     Indication: NASOPHARYNGEAL CANCER
     Dosage: 246 MG, 1X/DAY
     Route: 042
     Dates: start: 20161115, end: 20161115
  9. ALLOPURINOL. [Concomitant]
     Active Substance: ALLOPURINOL
     Indication: PRODUCT USED FOR UNKNOWN INDICATION
     Dosage: 200 MG, 1X/DAY
     Route: 048
  10. ZOPHREN [Suspect]
     Active Substance: ONDANSETRON
     Indication: PREMEDICATION
     Dosage: 8 MG, 1X/DAY
     Route: 042
     Dates: start: 20161115, end: 20161115
  11. SOLU-MEDROL [Suspect]
     Active Substance: METHYLPREDNISOLONE SODIUM SUCCINATE
     Indication: PREMEDICATION
     Dosage: 80 MG, 1X/DAY
     Route: 042
     Dates: start: 20161115, end: 20161115

REACTIONS (10)
  - Hyperammonaemic encephalopathy [Unknown]
  - Coma [Recovered/Resolved]
  - White blood cell count increased [Unknown]
  - Hyperammonaemia [Recovered/Resolved]
  - Hyperlactacidaemia [Unknown]
  - Status epilepticus [Unknown]
  - Pyrexia [Unknown]
  - Platelet count increased [Unknown]
  - Metabolic acidosis [Unknown]
  - Hypertension [Unknown]

NARRATIVE: CASE EVENT DATE: 20161117
